FAERS Safety Report 5996940-2 (Version None)
Quarter: 2008Q4

REPORT INFORMATION
  Report Type: 
  Country: None (occurrence: None)
  Receive Date: 20081208
  Receipt Date: 20081204
  Transmission Date: 20090506
  Serious: Yes (Other)
  Sender: FDA-Public Use
  Company Number: A0759238A

PATIENT
  Age: 40 Year
  Sex: Female

DRUGS (1)
  1. METHYLCELLULOSE SUSPENSION REGULAR (METHYLCELLULOSE) [Suspect]
     Indication: DRUG USE FOR UNKNOWN INDICATION

REACTIONS (2)
  - ASTHMA [None]
  - PRURITUS [None]
